FAERS Safety Report 9110454 (Version 1)
Quarter: 2013Q1

REPORT INFORMATION
  Report Type: Spontaneous
  Country: US (occurrence: US)
  Receive Date: 20130222
  Receipt Date: 20130222
  Transmission Date: 20140127
  Serious: Yes (Hospitalization)
  Sender: FDA-Public Use
  Company Number: US-RB-050036-13

PATIENT
  Age: 19 Month
  Sex: Female

DRUGS (1)
  1. DELSYM CHILDREN^S COUGH SYRUP [Suspect]
     Indication: PRODUCT USED FOR UNKNOWN INDICATION
     Dosage: TOOK ABOUT 3 QUATERS FULL BOTTLE OF THE PRODUCT
     Route: 048
     Dates: start: 20130207

REACTIONS (6)
  - Heart rate increased [Recovered/Resolved]
  - Staring [Recovered/Resolved]
  - Feeling drunk [Recovered/Resolved]
  - Gait disturbance [Recovered/Resolved]
  - Accidental exposure to product by child [Recovered/Resolved]
  - Failure of child resistant mechanism for pharmaceutical product [None]
